FAERS Safety Report 4358038-9 (Version None)
Quarter: 2004Q2

REPORT INFORMATION
  Report Type: 
  Country: None (occurrence: None)
  Receive Date: 20040514
  Receipt Date: 20040506
  Transmission Date: 20050107
  Serious: Yes (Hospitalization)
  Sender: FDA-Public Use
  Company Number: 200411460EU

PATIENT
  Age: 69 Year
  Sex: Male

DRUGS (4)
  1. RILUTEK [Suspect]
     Indication: AMYOTROPHIC LATERAL SCLEROSIS
     Route: 048
     Dates: start: 20040214, end: 20040425
  2. MAGNESIUM DIASPORAL [Concomitant]
     Indication: MUSCLE CRAMP
     Route: 048
     Dates: start: 20030801, end: 20040428
  3. CALCIUM [Concomitant]
     Indication: DYSPEPSIA
     Route: 048
     Dates: start: 20030801, end: 20040426
  4. MARIENDISTEL CURARINA [Concomitant]
     Route: 048
     Dates: end: 20040426

REACTIONS (8)
  - ANOREXIA [None]
  - ASTHENIA [None]
  - DIARRHOEA [None]
  - HEPATIC FAILURE [None]
  - HEPATIC STEATOSIS [None]
  - HEPATOTOXICITY [None]
  - PYREXIA [None]
  - VOMITING [None]
